FAERS Safety Report 8810336 (Version 1)
Quarter: 2012Q4

REPORT INFORMATION
  Report Type: 
  Country: GB (occurrence: GB)
  Receive Date: 20120926
  Receipt Date: 20120926
  Transmission Date: 20130627
  Serious: Yes (Hospitalization, Disabling, Other)
  Sender: FDA-Public Use
  Company Number: GB-MERCK-1209GBR009421

PATIENT
  Age: 74 Year
  Sex: Male
  Weight: 57.8 kg

DRUGS (14)
  1. JANUVIA [Suspect]
     Dosage: 100 mg, qd
     Route: 048
     Dates: end: 20120828
  2. ALLOPURINOL [Concomitant]
  3. AMLODIPINE [Concomitant]
  4. ARTIFICIAL TEARS (BENZALKONIUM CHLORIDE (+) GLYCERIN (+) PROPYLENE GLY [Concomitant]
  5. BECLOMETHASONE DIPROPIONATE [Concomitant]
  6. CANDESARTAN [Concomitant]
  7. CITALOPRAM [Concomitant]
  8. CLOPIDOGREL [Concomitant]
  9. ACETAMINOPHEN (+) CODEINE PHOSPHATE [Concomitant]
  10. EPADERM [Concomitant]
  11. LAXIDO [Concomitant]
  12. RANITIDINE [Concomitant]
  13. SIMVASTATIN [Concomitant]
  14. TAMSULOSIN HYDROCHLORIDE [Concomitant]

REACTIONS (1)
  - Gastrointestinal hypomotility [Not Recovered/Not Resolved]
